FAERS Safety Report 8844175 (Version 1)
Quarter: 2012Q4

REPORT INFORMATION
  Report Type: 
  Country: DE (occurrence: DE)
  Receive Date: 20121016
  Receipt Date: 20121016
  Transmission Date: 20130627
  Serious: Yes (Other)
  Sender: FDA-Public Use
  Company Number: DE-ASTELLAS-2012EU006463

PATIENT
  Sex: Male

DRUGS (1)
  1. SOLIFENACIN [Suspect]
     Dosage: UNK
     Route: 065

REACTIONS (3)
  - Deep vein thrombosis [Unknown]
  - Fatigue [Unknown]
  - Oedema peripheral [Unknown]
